FAERS Safety Report 5738880-X (Version None)
Quarter: 2008Q2

REPORT INFORMATION
  Report Type: 
  Country: None (occurrence: None)
  Receive Date: 20080515
  Receipt Date: 20080422
  Transmission Date: 20081010
  Serious: Yes (Death, Other)
  Sender: FDA-Public Use
  Company Number: US-AMGEN-KDL263017

PATIENT
  Sex: Female
  Weight: 136.2 kg

DRUGS (23)
  1. PROCRIT [Suspect]
     Indication: RENAL FAILURE CHRONIC
     Dates: start: 20071101
  2. ZAROXOLYN [Concomitant]
  3. HUMULIN R [Concomitant]
  4. ASPIRIN [Concomitant]
  5. LANOXIN [Concomitant]
  6. CARDIZEM CD [Concomitant]
  7. CLONIDINE [Concomitant]
  8. METOPROLOL TARTRATE [Concomitant]
  9. COUMADIN [Concomitant]
  10. ZOCOR [Concomitant]
  11. DEMADEX [Concomitant]
  12. THIAMINE HCL [Concomitant]
  13. ERGOCALCIFEROL [Concomitant]
  14. NEPHRO-VITE [Concomitant]
  15. POTASSIUM CHLORIDE [Concomitant]
  16. PROTONIX [Concomitant]
  17. COLACE [Concomitant]
  18. SENNA [Concomitant]
  19. LEXAPRO [Concomitant]
  20. AMBIEN [Concomitant]
  21. TRAZODONE HCL [Concomitant]
  22. PERCOCET [Concomitant]
  23. CALCITRIOL [Concomitant]

REACTIONS (2)
  - NEPHROGENIC SYSTEMIC FIBROSIS [None]
  - RENAL FAILURE CHRONIC [None]
